FAERS Safety Report 16771732 (Version 1)
Quarter: 2019Q3

REPORT INFORMATION
  Report Type: Spontaneous
  Country: US (occurrence: US)
  Receive Date: 20190715
  Receipt Date: 20190715
  Transmission Date: 20191005
  Serious: Yes (Hospitalization)
  Sender: FDA-Public Use
  Company Number: None

PATIENT
  Age: 61 Year
  Sex: Female

DRUGS (10)
  1. VITAMIN C [Suspect]
     Active Substance: ASCORBIC ACID
  2. CLARITIN [Concomitant]
     Active Substance: LORATADINE
  3. LEVALBUTEROL NEB [Concomitant]
  4. ADVAIR HFA [Concomitant]
     Active Substance: FLUTICASONE PROPIONATE\SALMETEROL XINAFOATE
  5. XOLAIR [Suspect]
     Active Substance: OMALIZUMAB
     Indication: ASTHMA
     Dosage: ?          OTHER FREQUENCY:Q2WKLY;?
     Route: 058
     Dates: start: 20160329
  6. ESOMEPRAZOLE INJ [Concomitant]
  7. IPRATROPIUM/SOL [Concomitant]
  8. CENTRUM [Concomitant]
     Active Substance: VITAMINS
  9. VITAMIN D3 [Concomitant]
     Active Substance: CHOLECALCIFEROL
  10. LORAZEPAM. [Concomitant]
     Active Substance: LORAZEPAM

REACTIONS (2)
  - Pneumonia [None]
  - Product formulation issue [None]

NARRATIVE: CASE EVENT DATE: 20190622
